FAERS Safety Report 5194251-9 (Version None)
Quarter: 2006Q4

REPORT INFORMATION
  Report Type: 
  Country: None (occurrence: None)
  Receive Date: 20061228
  Receipt Date: 20061220
  Transmission Date: 20070319
  Serious: Yes (Hospitalization)
  Sender: FDA-Public Use
  Company Number: FR-BOEHRINGER INGELHEIM PHARMACEUTICALS, INC.-2006-FF-01426FF

PATIENT
  Age: 34 Year
  Sex: Male

DRUGS (1)
  1. MOBIC [Suspect]
     Indication: TENDONITIS
     Route: 048
     Dates: start: 20061002, end: 20061010

REACTIONS (2)
  - BALANOPOSTHITIS [None]
  - STEVENS-JOHNSON SYNDROME [None]
